FAERS Safety Report 16725182 (Version 1)
Quarter: 2019Q4

REPORT INFORMATION
  Report Type: Spontaneous
  Country: US (occurrence: US)
  Receive Date: 20190820
  Receipt Date: 20190820
  Transmission Date: 20200122
  Serious: No
  Sender: FDA-Public Use
  Company Number: None

PATIENT
  Age: 31 Year
  Sex: Female
  Weight: 63.5 kg

DRUGS (15)
  1. ONDANSETRON 8MG INJECTION [Concomitant]
     Dates: start: 20190815, end: 20190815
  2. TDAP VACCINE [Concomitant]
     Active Substance: DIPHTHERIA AND TETANUS TOXOIDS AND PERTUSSIS VACCINE
     Dates: start: 20190817, end: 20190817
  3. PREVNAR 13 VACCINE [Concomitant]
     Dates: start: 20190817, end: 20190817
  4. EPHEDRINE SULFATE 10MG IV [Concomitant]
     Dates: start: 20190815, end: 20190815
  5. OXYTOCIN 20UNITS/1000ML LR [Concomitant]
     Dates: start: 20190815, end: 20190815
  6. PROMETHAZINE 12.5MG/50ML DEXTROSE [Concomitant]
     Dates: start: 20190815, end: 20190815
  7. FERROUS SULFATE EC TABLET 325MG [Concomitant]
     Dates: start: 20190815, end: 20190817
  8. DOCUSATE SODIUM CAPSULE 100MG [Concomitant]
     Dates: start: 20190815, end: 20190817
  9. CEFAZOLIN INJECTION [Concomitant]
     Active Substance: CEFAZOLIN
     Dates: start: 20190815, end: 20190815
  10. LACTED RINGERS 2000ML [Concomitant]
     Dates: start: 20190815, end: 20190815
  11. KETOROLAC 30MG INJECTION [Concomitant]
     Dates: start: 20190815, end: 20190816
  12. IBUPROFEN 800MG TABLET [Concomitant]
     Active Substance: IBUPROFEN
     Dates: start: 20190816, end: 20190817
  13. DURAMORPH [Suspect]
     Active Substance: MORPHINE SULFATE
     Indication: CAESAREAN SECTION
     Dosage: ?          OTHER FREQUENCY:ONCE;?
     Route: 037
     Dates: start: 20190815, end: 20190815
  14. HYDROCODONE 10 ACETAMINOPHEN 325MG TABLET [Concomitant]
     Dates: start: 20190815, end: 20190816
  15. BUPIVACAINE 0.75% PF INJECTION [Concomitant]
     Dates: start: 20190815, end: 20190815

REACTIONS (5)
  - Exposure during pregnancy [None]
  - Obstetric procedure complication [None]
  - Caesarean section [None]
  - Hypotension [None]
  - Hypothermia [None]

NARRATIVE: CASE EVENT DATE: 20190815
